FAERS Safety Report 24110915 (Version 4)
Quarter: 2025Q1

REPORT INFORMATION
  Report Type: Spontaneous
  Country: US (occurrence: US)
  Receive Date: 20240718
  Receipt Date: 20250131
  Transmission Date: 20250409
  Serious: Yes (Other)
  Sender: SANOFI AVENTIS
  Company Number: US-SA-SAC20240715001367

PATIENT
  Age: 66 Year
  Sex: Female
  Weight: 83 kg

DRUGS (36)
  1. DUPIXENT [Suspect]
     Active Substance: DUPILUMAB
     Indication: Asthma
     Dosage: 300 MG, QOW
     Route: 058
  2. BREZTRI [Concomitant]
     Active Substance: BUDESONIDE\FORMOTEROL\GLYCOPYRROLATE
  3. MUCINEX [Concomitant]
     Active Substance: GUAIFENESIN
  4. ASTEPRO [Concomitant]
     Active Substance: AZELASTINE HYDROCHLORIDE
  5. VALSARTAN [Concomitant]
     Active Substance: VALSARTAN
  6. LEVSIN SL [Concomitant]
     Active Substance: HYOSCYAMINE SULFATE
  7. ALBUTEROL SULFATE [Concomitant]
     Active Substance: ALBUTEROL SULFATE
  8. VITAMIN D3 [Concomitant]
     Active Substance: CHOLECALCIFEROL
  9. PREVACID [Concomitant]
     Active Substance: LANSOPRAZOLE
  10. LIDOCAINE [Concomitant]
     Active Substance: LIDOCAINE
  11. EPINEPHRINE [Concomitant]
     Active Substance: EPINEPHRINE
  12. DIPHENHYDRAMINE HYDROCHLORIDE [Concomitant]
     Active Substance: DIPHENHYDRAMINE HYDROCHLORIDE
  13. GAMMAGARD LIQUID [Concomitant]
     Active Substance: HUMAN IMMUNOGLOBULIN G
  14. SYNTHROID [Concomitant]
     Active Substance: LEVOTHYROXINE SODIUM
  15. GOODY^S EXTRA STRENGTH [Concomitant]
  16. ROSUVASTATIN CALCIUM [Concomitant]
     Active Substance: ROSUVASTATIN CALCIUM
  17. ROSUVASTATIN CALCIUM [Concomitant]
     Active Substance: ROSUVASTATIN CALCIUM
  18. SINGULAIR [Concomitant]
     Active Substance: MONTELUKAST SODIUM
  19. SINGULAIR [Concomitant]
     Active Substance: MONTELUKAST SODIUM
  20. BUDESONIDE [Concomitant]
     Active Substance: BUDESONIDE
     Indication: Nasal congestion
  21. FLUTICASONE [Concomitant]
     Active Substance: FLUTICASONE
  22. FLUTICASONE [Concomitant]
     Active Substance: FLUTICASONE
  23. NITROGLYCERIN [Concomitant]
     Active Substance: NITROGLYCERIN
  24. SODIUM CHLORIDE [Concomitant]
     Active Substance: SODIUM CHLORIDE
  25. ACETAMINOPHEN [Concomitant]
     Active Substance: ACETAMINOPHEN
  26. LEVSIN [Concomitant]
     Active Substance: HYOSCYAMINE SULFATE
  27. ASPIRIN [Concomitant]
     Active Substance: ASPIRIN
  28. VITAMINS NOS [Concomitant]
     Active Substance: VITAMINS
  29. PREDNISONE [Concomitant]
     Active Substance: PREDNISONE
  30. AZITHROMYCIN [Concomitant]
     Active Substance: AZITHROMYCIN
  31. NYSTATIN [Concomitant]
     Active Substance: NYSTATIN
  32. SODIUM CHLORIDE [Concomitant]
     Active Substance: SODIUM CHLORIDE
  33. ROPINIROLE [Concomitant]
     Active Substance: ROPINIROLE
  34. MELOXICAM [Concomitant]
     Active Substance: MELOXICAM
  35. FLUTICASONE PROPIONATE [Concomitant]
     Active Substance: FLUTICASONE PROPIONATE
  36. PREDNISONE [Concomitant]
     Active Substance: PREDNISONE

REACTIONS (18)
  - Polymyalgia rheumatica [Unknown]
  - Breath sounds abnormal [Recovering/Resolving]
  - Respiratory tract infection [Recovering/Resolving]
  - Peripheral swelling [Recovered/Resolved]
  - Productive cough [Recovering/Resolving]
  - Sleep disorder due to a general medical condition [Unknown]
  - Dyspnoea exertional [Recovering/Resolving]
  - Sinusitis [Unknown]
  - Wheezing [Recovering/Resolving]
  - Rhonchi [Not Recovered/Not Resolved]
  - Skin atrophy [Recovering/Resolving]
  - Oedema peripheral [Recovering/Resolving]
  - Contusion [Recovering/Resolving]
  - Skin abrasion [Recovering/Resolving]
  - Breath sounds abnormal [Unknown]
  - Headache [Recovering/Resolving]
  - Back pain [Unknown]
  - Arthralgia [Recovering/Resolving]

NARRATIVE: CASE EVENT DATE: 20250101
